FAERS Safety Report 9665211 (Version 1)
Quarter: 2013Q4

REPORT INFORMATION
  Report Type: Spontaneous
  Country: FI (occurrence: FI)
  Receive Date: 20131101
  Receipt Date: 20131101
  Transmission Date: 20140711
  Serious: Yes (Death)
  Sender: FDA-Public Use
  Company Number: PHHY2013FI121087

PATIENT
  Age: 85 Year
  Sex: Female

DRUGS (26)
  1. APURIN SANDOZ [Suspect]
     Dosage: 100 MG, QD
     Route: 048
     Dates: start: 20111102, end: 20130930
  2. SOMAC [Suspect]
     Dosage: 20 MG, QD
     Route: 054
     Dates: start: 20130506, end: 20130930
  3. LITALGIN [Suspect]
     Dosage: UNK UKN, UNK
     Dates: start: 20110816, end: 20130930
  4. VI-SIBLIN [Suspect]
     Dosage: UNK UKN, UNK
     Dates: start: 20130905, end: 20130930
  5. DIFORMIN RETARD [Suspect]
     Dosage: 500 MG, BID
     Route: 048
     Dates: start: 20130528, end: 20130930
  6. PRADAXA [Suspect]
     Dosage: 110 MG, BID
     Route: 048
     Dates: start: 20130704, end: 20130930
  7. FURESIS [Suspect]
     Dosage: 20 MG, BID2SDO
     Route: 048
     Dates: start: 20070724, end: 20130930
  8. ENALAPRIL RATIOPHARM [Suspect]
     Dosage: 10 MG, QD
     Route: 048
     Dates: start: 20110803, end: 20130930
  9. PRAVASTATIN RATIOPHARM [Suspect]
     Dosage: 40 MG, QD
     Route: 048
     Dates: start: 20110728, end: 20130930
  10. NORSPAN//BUPRENORPHINE [Suspect]
     Dosage: 10 UG/HR, QW
     Route: 062
     Dates: start: 20130604, end: 20130930
  11. ZOPINOX [Suspect]
     Dosage: 7.5 MG, QD
     Route: 048
     Dates: start: 20130110, end: 20130930
  12. NASOFAN [Suspect]
     Dosage: 50 UG, QD2SDO
     Route: 045
     Dates: start: 20101015, end: 20130930
  13. BRICANYL [Suspect]
     Dosage: 0.25 UG, UNK
     Dates: start: 20070814, end: 20130930
  14. IPRAMOL [Suspect]
     Dosage: UNK UKN, UNK
     Dates: start: 20130910, end: 20130930
  15. FLIXOTIDE EVOHALER [Suspect]
     Dosage: 125 UG, UNK
     Dates: start: 20130309, end: 20130930
  16. OFTAGEL [Suspect]
     Dosage: 2.5 OT, UNK
     Dates: start: 20130219, end: 20130930
  17. CALCICHEW D3 FORTE [Concomitant]
     Dosage: UNK UKN, BID
     Route: 048
     Dates: start: 20120821
  18. KALEORID [Concomitant]
     Dosage: 1 G, BID
     Route: 048
     Dates: start: 20130506
  19. MYCOSTATIN [Concomitant]
     Dosage: 100000 IU/ML, QID
     Route: 048
     Dates: start: 20130911
  20. TREXAN [Concomitant]
     Dosage: UNK UKN, UNK
     Dates: end: 201305
  21. PREDNISOLON [Concomitant]
     Dosage: 5 MG, QD
     Dates: start: 20130506
  22. DINIT [Concomitant]
     Dosage: 1.25 MG, UNK
     Dates: start: 20070306
  23. FOLVITE [Concomitant]
     Dosage: UNK UKN, UNK
     Route: 048
     Dates: start: 20130110, end: 201305
  24. ISANGINA [Concomitant]
     Dosage: 25 MG, QD
     Route: 048
     Dates: start: 20070403
  25. ORLOC [Concomitant]
     Dosage: 10 MG, QD
     Route: 048
     Dates: start: 20130528
  26. PARA-TABS [Concomitant]
     Dosage: 500 MG, TID
     Route: 048
     Dates: start: 20070814

REACTIONS (1)
  - Bone marrow failure [Fatal]
